FAERS Safety Report 7288982-4 (Version None)
Quarter: 2011Q1

REPORT INFORMATION
  Report Type: 
  Country: None (occurrence: None)
  Receive Date: 20110211
  Receipt Date: 20110201
  Transmission Date: 20110831
  Serious: Yes (Other)
  Sender: FDA-Public Use
  Company Number: US-JNJFOC-20110201308

PATIENT
  Age: 21 Year
  Sex: Female
  Weight: 52.62 kg

DRUGS (5)
  1. CONTRACEPTIVES [Concomitant]
     Route: 065
  2. MONISTAT-3 COMBINATION PACK [Suspect]
     Route: 067
  3. MONISTAT-3 COMBINATION PACK [Suspect]
     Route: 061
  4. MONISTAT-3 COMBINATION PACK [Suspect]
     Indication: FUNGAL INFECTION
     Route: 067
  5. MONISTAT-3 COMBINATION PACK [Suspect]
     Route: 061

REACTIONS (2)
  - VAGINITIS BACTERIAL [None]
  - DRUG INEFFECTIVE [None]
